FAERS Safety Report 14795052 (Version 1)
Quarter: 2018Q2

REPORT INFORMATION
  Report Type: Spontaneous
  Country: SN (occurrence: SN)
  Receive Date: 20180423
  Receipt Date: 20180423
  Transmission Date: 20180711
  Serious: Yes (Other)
  Sender: FDA-Public Use
  Company Number: SN-NOVAST LABORATORIES, LTD-SN-2018NOV000186

PATIENT
  Age: 63 Year
  Sex: Female

DRUGS (2)
  1. CLOBETASOL PROPIONATE. [Suspect]
     Active Substance: CLOBETASOL PROPIONATE
     Indication: SKIN DISCOLOURATION
     Dosage: UNK
     Route: 061
  2. HYDROQUINONE. [Suspect]
     Active Substance: HYDROQUINONE
     Indication: SKIN DISCOLOURATION
     Dosage: UNK
     Route: 061

REACTIONS (1)
  - Squamous cell carcinoma of skin [Unknown]
